FAERS Safety Report 8632253 (Version 3)
Quarter: 2012Q4

REPORT INFORMATION
  Report Type: 
  Country: US (occurrence: US)
  Receive Date: 20120625
  Receipt Date: 20120829
  Transmission Date: 20130627
  Serious: Yes (Hospitalization, Other)
  Sender: FDA-Public Use
  Company Number: US-BAYER-2012-059839

PATIENT
  Age: 35 Year
  Sex: Female
  Weight: 72.56 kg

DRUGS (5)
  1. GIANVI [Suspect]
     Indication: CONTRACEPTION
     Dosage: UNK
     Dates: start: 20111125, end: 20120115
  2. GIANVI [Suspect]
     Indication: ACNE
     Dosage: UNK
     Dates: start: 20111125, end: 20120115
  3. YAZ [Suspect]
     Indication: CONTRACEPTION
  4. YAZ [Suspect]
     Indication: ACNE
  5. MULTI-VITAMIN [Concomitant]
     Dosage: One pill once daily

REACTIONS (6)
  - Pulmonary embolism [Recovered/Resolved]
  - Lobar pneumonia [None]
  - Injury [Recovered/Resolved]
  - Flank pain [None]
  - Back pain [None]
  - Dyspnoea [Recovered/Resolved]
